FAERS Safety Report 7241861-0 (Version None)
Quarter: 2011Q1

REPORT INFORMATION
  Report Type: 
  Country: None (occurrence: None)
  Receive Date: 20110124
  Receipt Date: 20110117
  Transmission Date: 20110831
  Serious: Yes (Hospitalization)
  Sender: FDA-Public Use
  Company Number: FR-PFIZER INC-2011011277

PATIENT
  Age: 64 Year
  Sex: Male

DRUGS (12)
  1. SOLU-MEDROL [Suspect]
     Indication: COLON CANCER
     Dosage: UNK
     Route: 042
     Dates: start: 20101115, end: 20101115
  2. TOMUDEX [Suspect]
     Dosage: UNK
     Route: 042
     Dates: start: 20101115, end: 20101115
  3. MOPRAL [Concomitant]
  4. KARDEGIC [Concomitant]
  5. PREVISCAN [Concomitant]
  6. VANCOMYCIN [Concomitant]
  7. THYROID HORMONES [Concomitant]
  8. ZOPHREN [Concomitant]
  9. ELOXATIN [Suspect]
     Indication: COLON CANCER
     Dosage: UNK
     Route: 042
     Dates: start: 20101115, end: 20101115
  10. CARDENSIEL [Concomitant]
  11. OFLOCET [Concomitant]
  12. EMEND [Concomitant]

REACTIONS (3)
  - CYANOSIS [None]
  - CHILLS [None]
  - PYREXIA [None]
